FAERS Safety Report 8212701-8 (Version None)
Quarter: 2012Q1

REPORT INFORMATION
  Report Type: 
  Country: None (occurrence: None)
  Receive Date: 20120228
  Receipt Date: 20111028
  Transmission Date: 20120608
  Serious: Yes (Other)
  Sender: FDA-Public Use
  Company Number: RB-34214-2011

PATIENT
  Age: 57 Year
  Sex: Female

DRUGS (1)
  1. SUBOXONE [Suspect]
     Indication: DRUG DEPENDENCE
     Dosage: (8 MG DAILY SUBLINGUAL)
     Route: 060
     Dates: start: 20080101

REACTIONS (1)
  - OFF LABEL USE [None]
